FAERS Safety Report 18087080 (Version 1)
Quarter: 2020Q3

REPORT INFORMATION
  Report Type: Spontaneous
  Country: IE (occurrence: IE)
  Receive Date: 20200729
  Receipt Date: 20200729
  Transmission Date: 20201103
  Serious: Yes (Other)
  Sender: FDA-Public Use
  Company Number: IE-PFIZER INC-2020285483

PATIENT
  Age: 57 Year
  Sex: Female

DRUGS (1)
  1. TRAZIMERA [Suspect]
     Active Substance: TRASTUZUMAB-QYYP
     Indication: INVASIVE DUCTAL BREAST CARCINOMA
     Dosage: 6 MG/KG, CYCLIC(6MG/KG 3 WEEKLY )
     Route: 042
     Dates: start: 20200603

REACTIONS (3)
  - Neuropathy peripheral [Recovered/Resolved]
  - Nausea [Recovered/Resolved]
  - Malaise [Recovered/Resolved]

NARRATIVE: CASE EVENT DATE: 20200604
